FAERS Safety Report 9498278 (Version 1)
Quarter: 2013Q3

REPORT INFORMATION
  Report Type: Spontaneous
  Country: US (occurrence: US)
  Receive Date: 20130904
  Receipt Date: 20130904
  Transmission Date: 20140515
  Serious: Yes (Other)
  Sender: FDA-Public Use
  Company Number: US-AMGEN-USASP2013061439

PATIENT
  Age: 56 Year
  Sex: Female
  Weight: 82.09 kg

DRUGS (7)
  1. ENBREL [Suspect]
     Indication: RHEUMATOID ARTHRITIS
     Dosage: 50 MG, QWK
     Route: 058
  2. VOLTAREN                           /00372301/ [Concomitant]
     Dosage: 25 MG, UNK
  3. METHOTREXATE [Concomitant]
     Dosage: 2.5 MG, UNK
  4. ZYRTEC [Concomitant]
     Dosage: 10 MG, UNK
  5. ASA [Concomitant]
     Dosage: 81 MG, UNK
  6. MULTIVITAMIN                       /00097801/ [Concomitant]
     Dosage: UNK
  7. FOLIC ACID [Concomitant]
     Dosage: 1 MG, UNK

REACTIONS (2)
  - Nephrolithiasis [Unknown]
  - Arthralgia [Unknown]
